FAERS Safety Report 12244523 (Version 3)
Quarter: 2016Q2

REPORT INFORMATION
  Report Type: Report from Study
  Country: US (occurrence: US)
  Receive Date: 20160407
  Receipt Date: 20160616
  Transmission Date: 20160815
  Serious: Yes (Hospitalization)
  Sender: FDA-Public Use
  Company Number: US-ROCHE-1736855

PATIENT
  Age: 63 Year
  Sex: Male
  Weight: 97.8 kg

DRUGS (8)
  1. ASPIRIN. [Suspect]
     Active Substance: ASPIRIN
     Indication: PRODUCT USED FOR UNKNOWN INDICATION
     Route: 065
  2. CETUXIMAB [Suspect]
     Active Substance: CETUXIMAB
     Route: 042
     Dates: start: 20160510, end: 20160524
  3. VEMURAFENIB [Suspect]
     Active Substance: VEMURAFENIB
     Route: 048
     Dates: start: 20160322
  4. CETUXIMAB [Suspect]
     Active Substance: CETUXIMAB
     Indication: COLORECTAL CANCER METASTATIC
     Dosage: DATE OF LAST DOSE:22/MAR/2016
     Route: 042
     Dates: start: 20151130
  5. VEMURAFENIB [Suspect]
     Active Substance: VEMURAFENIB
     Indication: COLORECTAL CANCER METASTATIC
     Dosage: DATE OF LAST DOSE:02/APR/2016
     Route: 048
     Dates: start: 20160209
  6. IRINOTECAN [Suspect]
     Active Substance: IRINOTECAN
     Indication: COLORECTAL CANCER METASTATIC
     Dosage: DATE OF LAST DOSE:22/MAR/2016
     Route: 042
     Dates: start: 20151130
  7. IRINOTECAN [Suspect]
     Active Substance: IRINOTECAN
     Route: 042
     Dates: start: 20160510, end: 20160524
  8. VEMURAFENIB [Suspect]
     Active Substance: VEMURAFENIB
     Dosage: DATE OF LAST DOSE OF VEMURAFENIB: 06/JUN/2016
     Route: 048
     Dates: start: 20160510

REACTIONS (3)
  - Lower gastrointestinal haemorrhage [Recovering/Resolving]
  - Haemorrhoidal haemorrhage [Not Recovered/Not Resolved]
  - Pyrexia [Recovered/Resolved]

NARRATIVE: CASE EVENT DATE: 20160402
